FAERS Safety Report 24149673 (Version 1)
Quarter: 2024Q3

REPORT INFORMATION
  Report Type: Spontaneous
  Country: US (occurrence: US)
  Receive Date: 20240730
  Receipt Date: 20240730
  Transmission Date: 20241016
  Serious: Yes (Hospitalization, Other)
  Sender: NOVO NORDISK
  Company Number: US-NOVOPROD-1259174

PATIENT
  Age: 51 Year
  Sex: Female

DRUGS (2)
  1. OZEMPIC [Suspect]
     Active Substance: SEMAGLUTIDE
     Indication: Product used for unknown indication
     Dosage: UNK
     Route: 058
     Dates: start: 202207
  2. WEGOVY [Suspect]
     Active Substance: SEMAGLUTIDE
     Indication: Product used for unknown indication
     Dosage: UNK
     Route: 058
     Dates: start: 202207

REACTIONS (4)
  - Appendicolith [Unknown]
  - Gastrointestinal disorder [Not Recovered/Not Resolved]
  - Impaired gastric emptying [Unknown]
  - Faecalith [Unknown]

NARRATIVE: CASE EVENT DATE: 20230401
